FAERS Safety Report 18071524 (Version 3)
Quarter: 2020Q3

REPORT INFORMATION
  Report Type: Report from Study
  Country: US (occurrence: US)
  Receive Date: 20200727
  Receipt Date: 20200821
  Transmission Date: 20201103
  Serious: Yes (Hospitalization)
  Sender: FDA-Public Use
  Company Number: PHHO2018US012487

PATIENT
  Age: 54 Year
  Sex: Female
  Weight: 44 kg

DRUGS (2)
  1. LSZ102 [Suspect]
     Active Substance: INVESTIGATIONAL PRODUCT
     Indication: BREAST CANCER METASTATIC
     Dosage: 300 MG, QD
     Route: 048
     Dates: start: 20181107, end: 20181116
  2. PIQRAY [Suspect]
     Active Substance: ALPELISIB
     Indication: BREAST CANCER METASTATIC
     Dosage: 200 MG, QD
     Route: 048
     Dates: start: 20181107, end: 20181116

REACTIONS (1)
  - Enterocolitis [Recovered/Resolved]

NARRATIVE: CASE EVENT DATE: 20181118
